FAERS Safety Report 13854213 (Version 1)
Quarter: 2017Q3

REPORT INFORMATION
  Report Type: Spontaneous
  Country: FR (occurrence: FR)
  Receive Date: 20170809
  Receipt Date: 20170809
  Transmission Date: 20171127
  Serious: Yes (Hospitalization, Other)
  Sender: FDA-Public Use
  Company Number: FR-ELI_LILLY_AND_COMPANY-FR201708000180

PATIENT
  Sex: Female

DRUGS (4)
  1. HUMALOG [Suspect]
     Active Substance: INSULIN LISPRO
     Indication: PRODUCT USED FOR UNKNOWN INDICATION
     Dosage: 2100 IU, UNKNOWN
     Route: 058
     Dates: start: 20170718
  2. LANTUS [Suspect]
     Active Substance: INSULIN GLARGINE
     Indication: PRODUCT USED FOR UNKNOWN INDICATION
     Dosage: 600 IU, UNKNOWN
     Route: 058
     Dates: start: 20170718
  3. ALPRAZOLAM. [Concomitant]
     Active Substance: ALPRAZOLAM
     Indication: PRODUCT USED FOR UNKNOWN INDICATION
  4. PAROXETINE. [Suspect]
     Active Substance: PAROXETINE
     Indication: PRODUCT USED FOR UNKNOWN INDICATION
     Dosage: 280 MG, UNKNOWN
     Route: 048
     Dates: start: 20170718

REACTIONS (5)
  - Hypokalaemia [Unknown]
  - Suicide attempt [Unknown]
  - Nystagmus [Recovered/Resolved]
  - Hypoglycaemia [Recovered/Resolved]
  - Blood phosphorus decreased [Unknown]
